FAERS Safety Report 25648604 (Version 2)
Quarter: 2025Q4

REPORT INFORMATION
  Report Type: Spontaneous
  Country: EU (occurrence: EU)
  Receive Date: 20250806
  Receipt Date: 20251003
  Transmission Date: 20260117
  Serious: Yes (Death, Other)
  Sender: ACCORD
  Company Number: None

PATIENT
  Age: 69 Year
  Sex: Female
  Weight: 50 kg

DRUGS (4)
  1. CAPECITABINE [Suspect]
     Active Substance: CAPECITABINE
     Indication: Salivary gland cancer
     Dosage: STRENGTH: 500 MG?1300MG EVERY 12 HOURS FOR 14 DAYS
     Dates: start: 20250424, end: 20250603
  2. CISPLATIN [Suspect]
     Active Substance: CISPLATIN
     Indication: Salivary gland cancer
     Dosage: 110MG EVERY 21 DAYS
     Dates: start: 20250424, end: 20250603
  3. DOCETAXEL [Suspect]
     Active Substance: DOCETAXEL
     Indication: Salivary gland cancer
     Dosage: 110.25MG EVERY 21 DAYS
     Dates: start: 20250424, end: 20250603
  4. LEVOTHYROXINE SODIUM [Concomitant]
     Active Substance: LEVOTHYROXINE SODIUM
     Dosage: STRENGTH: 25 MICROGRAM

REACTIONS (4)
  - Pulmonary embolism [Fatal]
  - Dysphagia [Not Recovered/Not Resolved]
  - Hypokalaemia [Not Recovered/Not Resolved]
  - Mucosal inflammation [Not Recovered/Not Resolved]

NARRATIVE: CASE EVENT DATE: 20250603
